FAERS Safety Report 8881097 (Version 1)
Quarter: 2012Q4

REPORT INFORMATION
  Report Type: 
  Country: US (occurrence: US)
  Receive Date: 20121101
  Receipt Date: 20121101
  Transmission Date: 20130627
  Serious: No
  Sender: FDA-Public Use
  Company Number: US-BAYER-2012-114736

PATIENT
  Age: 68 Year
  Sex: Female
  Weight: 56.69 kg

DRUGS (5)
  1. ALEVE CAPLET/TABLET,MIDOL EXTENDED RELIEF CAPLET [Suspect]
     Dosage: 2 DF, BID
     Route: 048
     Dates: start: 2010
  2. B12-VITAMIN [Concomitant]
  3. CALCIUM [Concomitant]
  4. PREMARIN [Concomitant]
  5. GABAPENTIN [Concomitant]

REACTIONS (1)
  - No adverse event [None]
